FAERS Safety Report 11287755 (Version 1)
Quarter: 2015Q3

REPORT INFORMATION
  Report Type: Spontaneous
  Country: US (occurrence: None)
  Receive Date: 20150720
  Receipt Date: 20150720
  Transmission Date: 20151125
  Serious: Yes (Other)
  Sender: FDA-Public Use
  Company Number: None

PATIENT
  Age: 23 Month
  Sex: Male
  Weight: 12.7 kg

DRUGS (2)
  1. AMOXICILLIN. [Suspect]
     Active Substance: AMOXICILLIN
     Indication: SINUSITIS
     Dosage: TAKEN BY MOUTH
     Dates: start: 20150703, end: 20150711
  2. MULTI VITAMIN [Concomitant]
     Active Substance: VITAMINS

REACTIONS (2)
  - Serum sickness [None]
  - Abasia [None]

NARRATIVE: CASE EVENT DATE: 20150712
